FAERS Safety Report 8367282-5 (Version None)
Quarter: 2012Q2

REPORT INFORMATION
  Report Type: 
  Country: None (occurrence: None)
  Receive Date: 20120517
  Receipt Date: 20120512
  Transmission Date: 20120825
  Serious: Yes (Hospitalization, Other)
  Sender: FDA-Public Use
  Company Number: PHEH2012US010038

PATIENT
  Weight: 99.79 kg

DRUGS (1)
  1. DIOVAN [Suspect]
     Dosage: 320 MG, QD
     Dates: start: 20090401

REACTIONS (2)
  - CORONARY ARTERY OCCLUSION [None]
  - CHEST PAIN [None]
